FAERS Safety Report 17689057 (Version 7)
Quarter: 2020Q3

REPORT INFORMATION
  Report Type: Spontaneous
  Country: US (occurrence: US)
  Receive Date: 20200421
  Receipt Date: 20200728
  Transmission Date: 20201102
  Serious: No
  Sender: FDA-Public Use
  Company Number: NVSC2020US105926

PATIENT
  Age: 79 Year
  Sex: Female

DRUGS (4)
  1. AFINITOR [Suspect]
     Active Substance: EVEROLIMUS
     Dosage: UNK
     Route: 065
     Dates: start: 20200623
  2. AFINITOR [Suspect]
     Active Substance: EVEROLIMUS
     Indication: RENAL CANCER
     Dosage: UNK
     Route: 065
     Dates: start: 20200526
  3. LENVIMA [Suspect]
     Active Substance: LENVATINIB
     Dosage: 8 MG, QD
     Route: 048
     Dates: start: 20200526
  4. LENVIMA [Suspect]
     Active Substance: LENVATINIB
     Indication: RENAL CANCER
     Dosage: 10 MG, QD
     Route: 048
     Dates: start: 20200623

REACTIONS (8)
  - Fatigue [Not Recovered/Not Resolved]
  - Erythema [Unknown]
  - Constipation [Not Recovered/Not Resolved]
  - Tumour marker increased [Recovering/Resolving]
  - Burning sensation [Unknown]
  - Palmar-plantar erythrodysaesthesia syndrome [Not Recovered/Not Resolved]
  - Diarrhoea [Recovered/Resolved]
  - Nausea [Recovered/Resolved]

NARRATIVE: CASE EVENT DATE: 20200414
